FAERS Safety Report 17699058 (Version 2)
Quarter: 2020Q2

REPORT INFORMATION
  Report Type: Spontaneous
  Country: BR (occurrence: BR)
  Receive Date: 20200423
  Receipt Date: 20200430
  Transmission Date: 20200714
  Serious: Yes (Other)
  Sender: FDA-Public Use
  Company Number: BR-MYLANLABS-2020M1040700

PATIENT
  Age: 68 Year
  Sex: Male
  Weight: 75 kg

DRUGS (12)
  1. EUTHYROX [Concomitant]
     Active Substance: LEVOTHYROXINE SODIUM
     Dosage: 25MCG 2X PER DAY
  2. FRONTAL [Concomitant]
     Active Substance: ALPRAZOLAM
     Dosage: 0,5MG 1 TABLET PER DAY
  3. LOSEC [Concomitant]
     Active Substance: OMEPRAZOLE
     Dosage: 10MG 1 TABLET PER DAY
  4. NOVALGINA [Concomitant]
     Active Substance: METAMIZOLE SODIUM
     Dosage: UNK
  5. SIMETHICONE (DIMETHICONE) [Concomitant]
     Active Substance: DIMETHICONE
     Dosage: 40MG 3X PER DAY
  6. AAS PROTECT [Concomitant]
     Active Substance: ASPIRIN
     Dosage: 100MG 1 TABLET PER DAY
  7. CRESTOR [Concomitant]
     Active Substance: ROSUVASTATIN CALCIUM
     Dosage: 10MG 1 TABLET PER DAY
  8. LEXAPRO [Concomitant]
     Active Substance: ESCITALOPRAM OXALATE
     Dosage: 10MG 1 TABLET PER DAY
  9. SELOZOK [Concomitant]
     Active Substance: METOPROLOL SUCCINATE
     Dosage: 25MG 1 TABLET PER DAY
  10. DOMPERIDON                         /00498201/ [Concomitant]
     Active Substance: DOMPERIDONE
     Dosage: UNK
  11. FONDAPARINUX [Suspect]
     Active Substance: FONDAPARINUX
     Indication: PROPHYLAXIS
     Dosage: 2.5 MG, 1 DOSE DAILY
     Route: 058
     Dates: start: 20200211, end: 20200213
  12. ONDANSETRON [Concomitant]
     Active Substance: ONDANSETRON
     Dosage: UNK

REACTIONS (3)
  - Hyperaemia [Recovering/Resolving]
  - Rash [Recovering/Resolving]
  - Pruritus [Recovering/Resolving]

NARRATIVE: CASE EVENT DATE: 20200212
